FAERS Safety Report 11115529 (Version 6)
Quarter: 2018Q1

REPORT INFORMATION
  Report Type: Spontaneous
  Country: BR (occurrence: BR)
  Receive Date: 20150515
  Receipt Date: 20180328
  Transmission Date: 20180508
  Serious: Yes (Other)
  Sender: FDA-Public Use
  Company Number: BR-ROCHE-1577665

PATIENT
  Sex: Male

DRUGS (2)
  1. RIVOTRIL [Interacting]
     Active Substance: CLONAZEPAM
     Indication: INSOMNIA
     Route: 048
  2. RIVOTRIL [Suspect]
     Active Substance: CLONAZEPAM
     Indication: SLEEP DISORDER THERAPY
     Dosage: 2.5 MG/ML
     Route: 048
     Dates: start: 2014

REACTIONS (15)
  - Muscular weakness [Not Recovered/Not Resolved]
  - Off label use [Unknown]
  - Anxiety [Unknown]
  - Food interaction [Unknown]
  - Dizziness [Unknown]
  - Somnolence [Recovered/Resolved]
  - Constipation [Not Recovered/Not Resolved]
  - Insomnia [Unknown]
  - Weight decreased [Recovering/Resolving]
  - Drug effect increased [Unknown]
  - Intentional product use issue [Unknown]
  - Intentional underdose [Unknown]
  - Drug dependence [Unknown]
  - Helicobacter infection [Unknown]
  - Depression [Unknown]
